FAERS Safety Report 17731040 (Version 2)
Quarter: 2020Q2

REPORT INFORMATION
  Report Type: Spontaneous
  Country: US (occurrence: US)
  Receive Date: 20200430
  Receipt Date: 20200626
  Transmission Date: 20200714
  Serious: Yes (Hospitalization, Other)
  Sender: FDA-Public Use
  Company Number: US-SUNOVION-2020SUN001316

PATIENT
  Sex: Female

DRUGS (5)
  1. LATUDA [Suspect]
     Active Substance: LURASIDONE HYDROCHLORIDE
     Indication: BIPOLAR DISORDER
     Dosage: 60 MG
     Route: 048
  2. OXCARBAZEPINE. [Concomitant]
     Active Substance: OXCARBAZEPINE
     Dosage: 300 MG
  3. LITHIUM. [Concomitant]
     Active Substance: LITHIUM
     Dosage: UNK
  4. LATUDA [Suspect]
     Active Substance: LURASIDONE HYDROCHLORIDE
     Dosage: 40 MG
     Route: 048
  5. BUPROPION. [Concomitant]
     Active Substance: BUPROPION
     Dosage: 300 MG

REACTIONS (7)
  - Suicidal ideation [Unknown]
  - Aggression [Unknown]
  - Attention deficit hyperactivity disorder [Unknown]
  - Anxiety [Unknown]
  - Stress [Unknown]
  - Post-traumatic stress disorder [Unknown]
  - Drug ineffective [Unknown]
